FAERS Safety Report 15688262 (Version 1)
Quarter: 2018Q4

REPORT INFORMATION
  Report Type: Spontaneous
  Country: DE (occurrence: DE)
  Receive Date: 20181205
  Receipt Date: 20181205
  Transmission Date: 20190205
  Serious: Yes (Other)
  Sender: FDA-Public Use
  Company Number: DE-ROCHE-2225594

PATIENT
  Age: 51 Year
  Sex: Female

DRUGS (3)
  1. ROACTEMRA [Suspect]
     Active Substance: TOCILIZUMAB
     Indication: POLYARTHRITIS
     Dosage: MOST RECENT DOSE: JAN/2018
     Route: 065
     Dates: start: 201401
  2. CHLOROQUIN [Concomitant]
     Indication: POLYARTHRITIS
     Route: 048
     Dates: start: 199911, end: 201807
  3. METHOTREXAT [Concomitant]
     Active Substance: METHOTREXATE
     Indication: POLYARTHRITIS
     Route: 048
     Dates: start: 199904, end: 201807

REACTIONS (1)
  - Ovarian cancer [Recovered/Resolved with Sequelae]

NARRATIVE: CASE EVENT DATE: 201801
